FAERS Safety Report 8448698-5 (Version None)
Quarter: 2012Q2

REPORT INFORMATION
  Report Type: 
  Country: None (occurrence: None)
  Receive Date: 20120619
  Receipt Date: 20120608
  Transmission Date: 20120825
  Serious: Yes (Hospitalization)
  Sender: FDA-Public Use
  Company Number: US-ALLERGAN-1208094US

PATIENT
  Age: 48 Year
  Sex: Female
  Weight: 87.982 kg

DRUGS (7)
  1. VITAMIN B-12 [Concomitant]
     Indication: MEDICAL DIET
     Dosage: 500 MG, QD
     Dates: start: 20110119
  2. COQ10 [Concomitant]
     Indication: MEDICAL DIET
  3. ASCORBIC ACID [Concomitant]
     Indication: MEDICAL DIET
     Dosage: 500 MG, QD
     Dates: start: 20110119
  4. PRAVASTATIN [Concomitant]
     Indication: BLOOD CHOLESTEROL INCREASED
     Dosage: 20 MG, QD
     Dates: start: 20110119, end: 20120508
  5. PLACEBO [Suspect]
     Indication: HYPERTONIC BLADDER
     Dosage: UNK
     Dates: start: 20120329
  6. TROSPIUM CHLORIDE [Suspect]
     Indication: HYPERTONIC BLADDER
     Dosage: UNK
     Dates: start: 20120329
  7. MULTI-VITAMIN [Concomitant]
     Indication: MEDICAL DIET

REACTIONS (1)
  - PYELONEPHRITIS ACUTE [None]
